FAERS Safety Report 9215280 (Version 2)
Quarter: 2013Q2

REPORT INFORMATION
  Report Type: Report from Study
  Country: IN (occurrence: IN)
  Receive Date: 20130405
  Receipt Date: 20130606
  Transmission Date: 20140414
  Serious: Yes (Hospitalization)
  Sender: FDA-Public Use
  Company Number: IN-GILEAD-2013-0072479

PATIENT
  Age: 38 Year
  Sex: Female

DRUGS (11)
  1. TENOFOVIR DISOPROXIL FUMARATE [Suspect]
     Indication: HIV INFECTION
     Dosage: 300 MG, QD
     Route: 048
     Dates: start: 20090626
  2. EFAVIRENZ [Suspect]
     Indication: HIV INFECTION
     Dosage: 600 MG, QD
     Dates: start: 20080328
  3. LAMIVUDINE [Suspect]
     Indication: HIV INFECTION
     Dosage: 300 MG, QD
     Dates: start: 20080505
  4. METRONIDAZOLE [Concomitant]
  5. ONDANSETRON [Concomitant]
  6. RANITIDINE [Concomitant]
  7. DICYCLOMINE                        /00068601/ [Concomitant]
  8. PARACETAMOL [Concomitant]
  9. URSODEOXYCHOLIC ACID [Concomitant]
     Dosage: 300 MG, BID
     Dates: start: 20130308, end: 20130309
  10. CYSTONE [Concomitant]
     Dosage: 1 DF, TID
     Dates: start: 20130308
  11. VOVERAN                            /00372302/ [Concomitant]
     Dosage: UNK, BID
     Dates: start: 20130308

REACTIONS (1)
  - Influenza [Recovered/Resolved]
